FAERS Safety Report 20584537 (Version 2)
Quarter: 2022Q1

REPORT INFORMATION
  Report Type: Spontaneous
  Country: KR (occurrence: KR)
  Receive Date: 20220311
  Receipt Date: 20220318
  Transmission Date: 20220423
  Serious: Yes (Hospitalization, Disabling, Other)
  Sender: FDA-Public Use
  Company Number: KR-009507513-2203KOR003900

PATIENT
  Age: 62 Year
  Sex: Female
  Weight: 46.6 kg

DRUGS (3)
  1. PEMBROLIZUMAB [Suspect]
     Active Substance: PEMBROLIZUMAB
     Indication: Endometrial cancer
     Dosage: TOTAL DAILY DOSE: 200 MILLIGRAM
     Route: 042
     Dates: start: 20210918, end: 20210918
  2. LENVATINIB MESYLATE [Suspect]
     Active Substance: LENVATINIB MESYLATE
     Indication: Endometrial cancer
     Dosage: TOTAL DAILY DOSE: 10 MILLIGRAM
     Route: 048
     Dates: start: 20210918, end: 20220304
  3. NORVASC [Concomitant]
     Active Substance: AMLODIPINE BESYLATE
     Indication: Hypertension
     Dosage: TOTAL DAILY DOSE: 1 TABLET

REACTIONS (5)
  - Large intestine perforation [Recovered/Resolved]
  - Hyperbilirubinaemia [Recovering/Resolving]
  - Aspartate aminotransferase abnormal [Unknown]
  - Alanine aminotransferase abnormal [Unknown]
  - C-reactive protein increased [Unknown]

NARRATIVE: CASE EVENT DATE: 20220107
